FAERS Safety Report 23521162 (Version 1)
Quarter: 2024Q1

REPORT INFORMATION
  Report Type: Report from Study
  Country: US (occurrence: US)
  Receive Date: 20240214
  Receipt Date: 20240214
  Transmission Date: 20240410
  Serious: Yes (Other)
  Sender: FDA-Public Use
  Company Number: US-TAKEDA-2021TUS070697

PATIENT
  Sex: Female

DRUGS (2)
  1. PONATINIB [Suspect]
     Active Substance: PONATINIB
     Indication: Chloroma
     Dosage: 45 MILLIGRAM, QD
     Route: 048
  2. PONATINIB [Suspect]
     Active Substance: PONATINIB
     Indication: Myeloid leukaemia
     Dosage: 30 MILLIGRAM, QD
     Route: 048

REACTIONS (7)
  - Blindness [Unknown]
  - Myeloid leukaemia [Unknown]
  - Oral mucosal blistering [Unknown]
  - Vision blurred [Unknown]
  - Dry skin [Unknown]
  - Rash [Unknown]
  - Off label use [Unknown]
